FAERS Safety Report 7316605-4 (Version None)
Quarter: 2011Q1

REPORT INFORMATION
  Report Type: 
  Country: None (occurrence: None)
  Receive Date: 20110226
  Receipt Date: 20100719
  Transmission Date: 20110831
  Serious: Yes (Other)
  Sender: FDA-Public Use
  Company Number: US-ALLERGAN-1009347US

PATIENT
  Age: 40 Year
  Sex: Female

DRUGS (2)
  1. BOTOXA? [Suspect]
     Indication: MUSCLE SPASTICITY
     Dosage: 600 UNITS, SINGLE
     Route: 030
  2. UNSPECIFIED SEIZURE MEDICATION [Concomitant]
     Indication: CONVULSION

REACTIONS (1)
  - CONVULSION [None]
